FAERS Safety Report 7081218-9 (Version None)
Quarter: 2010Q4

REPORT INFORMATION
  Report Type: 
  Country: None (occurrence: None)
  Receive Date: 20101103
  Receipt Date: 20101027
  Transmission Date: 20110411
  Serious: Yes (Death)
  Sender: FDA-Public Use
  Company Number: JP-GENZYME-THYM-1002009

PATIENT
  Age: 54 Year
  Sex: Male
  Weight: 80 kg

DRUGS (1)
  1. THYMOGLOBULIN [Suspect]
     Dosage: 3.75 MG/KG, UNK
     Route: 042
     Dates: start: 20100927, end: 20101001

REACTIONS (1)
  - LYMPHOPROLIFERATIVE DISORDER [None]
